FAERS Safety Report 5834942-7 (Version None)
Quarter: 2008Q3

REPORT INFORMATION
  Report Type: 
  Country: None (occurrence: None)
  Receive Date: 20080804
  Receipt Date: 20080801
  Transmission Date: 20090109
  Serious: Yes (Death, Hospitalization)
  Sender: FDA-Public Use
  Company Number: 2008SP013945

PATIENT
  Age: 80 Year
  Sex: Male
  Weight: 76 kg

DRUGS (13)
  1. TEMODAL [Suspect]
     Indication: LYMPHOMA
     Dosage: 285 MG; QD; PO
     Route: 048
     Dates: start: 20080109, end: 20080113
  2. TEMODAL [Suspect]
     Indication: LYMPHOMA
     Dosage: 285 MG; QD; PO
     Route: 048
     Dates: start: 20080304
  3. METHOTREXATE [Suspect]
     Indication: LYMPHOMA
     Dosage: 6.51 GM; QD; IV
     Route: 042
     Dates: start: 20080109, end: 20080109
  4. METHOTREXATE [Suspect]
     Indication: LYMPHOMA
     Dosage: 6.51 GM; QD; IV
     Route: 042
     Dates: start: 20080304
  5. IDARUBICIN HCL [Suspect]
     Indication: LYMPHOMA
     Dosage: 75 MG; QD; PO
     Route: 048
     Dates: start: 20080625, end: 20080627
  6. IFOSFAMIDE [Suspect]
     Indication: LYMPHOMA
     Dosage: 1.88 GM; QD; IV
     Route: 042
     Dates: start: 20080625, end: 20080627
  7. SOLU-MEDROL [Concomitant]
  8. DIFFU K [Concomitant]
  9. LOVENOX [Concomitant]
  10. FORLAX [Concomitant]
  11. LANTUS [Concomitant]
  12. SEROPLEX [Concomitant]
  13. AUGMENTIN '125' [Concomitant]

REACTIONS (5)
  - ACUTE RESPIRATORY DISTRESS SYNDROME [None]
  - APLASIA [None]
  - DISEASE PROGRESSION [None]
  - LUNG DISORDER [None]
  - LYMPHOMA [None]
